FAERS Safety Report 10485012 (Version 1)
Quarter: 2014Q3

REPORT INFORMATION
  Report Type: Spontaneous
  Country: US (occurrence: US)
  Receive Date: 20140930
  Receipt Date: 20140930
  Transmission Date: 20150326
  Serious: No
  Sender: FDA-Public Use
  Company Number: US-TEVA-512645USA

PATIENT
  Sex: Female
  Weight: 64.92 kg

DRUGS (3)
  1. CLONAZEPAM. [Concomitant]
     Active Substance: CLONAZEPAM
     Indication: ANXIETY
  2. DILANTIN [Concomitant]
     Active Substance: PHENYTOIN
     Indication: EPILEPSY
  3. PLAN B ONE-STEP [Suspect]
     Active Substance: LEVONORGESTREL
     Indication: POST COITAL CONTRACEPTION
     Dosage: 1.5 MILLIGRAM DAILY;
     Route: 048
     Dates: start: 201403, end: 201403

REACTIONS (3)
  - Dizziness [Recovered/Resolved]
  - Dysmenorrhoea [Recovered/Resolved]
  - Menstruation irregular [Recovered/Resolved]
